FAERS Safety Report 10146120 (Version 3)
Quarter: 2014Q2

REPORT INFORMATION
  Report Type: Report from Study
  Country: ES (occurrence: ES)
  Receive Date: 20140501
  Receipt Date: 20140522
  Transmission Date: 20141212
  Serious: Yes (Hospitalization)
  Sender: FDA-Public Use
  Company Number: ES-PFIZER INC-2014115758

PATIENT
  Age: 58 Year
  Sex: Male
  Weight: 67 kg

DRUGS (8)
  1. MARAVIROC [Suspect]
     Dosage: 300 MG, 2X/DAY
     Dates: start: 20140222
  2. ATENOLOL [Concomitant]
     Indication: CORONARY ARTERY DISEASE
     Dosage: 50 MG, DAILY
     Dates: start: 20130403
  3. ENALAPRIL [Concomitant]
     Indication: HYPERTENSION
     Dosage: 5 MG, 1X/DAY
     Dates: start: 20130403
  4. ACETYLSALICYLIC ACID [Concomitant]
     Indication: CORONARY ARTERY DISEASE
     Dosage: 100 MG, 1X/DAY
     Dates: start: 20130403
  5. TRUVADA [Concomitant]
     Indication: HIV INFECTION
     Dosage: 445 MG, DAILY
     Dates: start: 20140222
  6. RALTEGRAVIR [Concomitant]
     Indication: HIV INFECTION
     Dosage: 400 MG, 2X/DAY
     Dates: start: 20140222
  7. TRAZODONE [Concomitant]
     Indication: ANXIETY
     Dosage: 100 MG, DAILY
     Dates: start: 20140307
  8. ATORVASTATIN [Concomitant]
     Indication: HYPERCHOLESTEROLAEMIA
     Dosage: 40 MG, DAILY
     Dates: start: 20130403

REACTIONS (1)
  - Sepsis [Recovered/Resolved]
